FAERS Safety Report 23873425 (Version 1)
Quarter: 2024Q2

REPORT INFORMATION
  Report Type: Spontaneous
  Country: US (occurrence: US)
  Receive Date: 20240520
  Receipt Date: 20240520
  Transmission Date: 20240716
  Serious: Yes (Hospitalization)
  Sender: FDA-Public Use
  Company Number: US-MYLANLABS-2024M1044977

PATIENT
  Age: 62 Year
  Sex: Male

DRUGS (2)
  1. GLIPIZIDE [Suspect]
     Active Substance: GLIPIZIDE
     Indication: Product used for unknown indication
     Dosage: UNK, INGESTED SEVERAL PILLS
     Route: 048
  2. OXYCODONE [Concomitant]
     Active Substance: OXYCODONE\OXYCODONE HYDROCHLORIDE
     Indication: Back pain
     Dosage: UNK, INGESTED SEVERAL PILLS
     Route: 048

REACTIONS (3)
  - Hypoglycaemia [Recovered/Resolved]
  - Accidental exposure to product [Unknown]
  - Accidental overdose [Unknown]
